FAERS Safety Report 25048408 (Version 1)
Quarter: 2025Q1

REPORT INFORMATION
  Report Type: Spontaneous
  Country: IN (occurrence: IN)
  Receive Date: 20250307
  Receipt Date: 20250307
  Transmission Date: 20250408
  Serious: Yes (Hospitalization, Other)
  Sender: NOVO NORDISK
  Company Number: IN-NOVOPROD-1377063

PATIENT
  Age: 76 Year
  Sex: Male

DRUGS (2)
  1. ACTRAPID [Suspect]
     Active Substance: INSULIN HUMAN
     Indication: Product used for unknown indication
     Dosage: 16 IU, QD(8 - 8 - 0 )
  2. ACTRAPID [Suspect]
     Active Substance: INSULIN HUMAN
     Dosage: 20 IU, QD

REACTIONS (4)
  - Prostatic operation [Unknown]
  - Blood glucose fluctuation [Unknown]
  - Blood glucose increased [Unknown]
  - Suspected product quality issue [Unknown]
